FAERS Safety Report 6971121-4 (Version None)
Quarter: 2010Q3

REPORT INFORMATION
  Report Type: 
  Country: None (occurrence: None)
  Receive Date: 20100908
  Receipt Date: 20100827
  Transmission Date: 20110219
  Serious: Yes (Hospitalization)
  Sender: FDA-Public Use
  Company Number: JP-JNJFOC-20100600456

PATIENT
  Sex: Female
  Weight: 46 kg

DRUGS (10)
  1. GOLIMUMAB [Suspect]
     Indication: RHEUMATOID ARTHRITIS
     Route: 058
  2. GOLIMUMAB [Suspect]
     Route: 058
  3. PREDNISOLONE [Suspect]
     Indication: RHEUMATOID ARTHRITIS
     Route: 048
  4. RHEUMATREX [Suspect]
     Indication: RHEUMATOID ARTHRITIS
     Route: 048
  5. VOLTAREN [Concomitant]
     Indication: RHEUMATOID ARTHRITIS
     Route: 048
  6. MUCOSTA [Concomitant]
     Indication: PROPHYLAXIS
     Route: 048
  7. SLOW-K [Concomitant]
     Route: 048
  8. SHAKUYAKU-K ANZO-TO [Concomitant]
     Route: 048
  9. ACTONEL [Concomitant]
     Route: 048
  10. FOLIAMIN [Concomitant]
     Indication: PROPHYLAXIS

REACTIONS (1)
  - ARTHRITIS BACTERIAL [None]
